FAERS Safety Report 18426978 (Version 1)
Quarter: 2020Q4

REPORT INFORMATION
  Report Type: Spontaneous
  Country: US (occurrence: US)
  Receive Date: 20201026
  Receipt Date: 20201026
  Transmission Date: 20210114
  Serious: No
  Sender: FDA-Public Use
  Company Number: None

PATIENT
  Age: 75 Year
  Sex: Male

DRUGS (15)
  1. REMDESIVIR. [Suspect]
     Active Substance: REMDESIVIR
     Indication: COVID-19
     Dates: start: 20201003, end: 20201007
  2. LATANOPROST OPHTHALMIC [Concomitant]
  3. LEVOTHYROXINE. [Concomitant]
     Active Substance: LEVOTHYROXINE
  4. MEMANTINE. [Concomitant]
     Active Substance: MEMANTINE
  5. POLYETHYLENE GLYCOL 3350. [Concomitant]
     Active Substance: POLYETHYLENE GLYCOL 3350
  6. TAMSULOSIN [Concomitant]
     Active Substance: TAMSULOSIN
  7. ENOXAPARIN [Concomitant]
     Active Substance: ENOXAPARIN
  8. ASPIRIN. [Concomitant]
     Active Substance: ASPIRIN
  9. LEVETIRACETAM. [Concomitant]
     Active Substance: LEVETIRACETAM
  10. DEXAMETHASONE. [Concomitant]
     Active Substance: DEXAMETHASONE
  11. MICONAZOLE. [Concomitant]
     Active Substance: MICONAZOLE
  12. OLANZAPINE. [Concomitant]
     Active Substance: OLANZAPINE
  13. AMANTADINE. [Concomitant]
     Active Substance: AMANTADINE HYDROCHLORIDE
  14. LORAZEPAM. [Concomitant]
     Active Substance: LORAZEPAM
  15. FERROUS SULFATE. [Concomitant]
     Active Substance: FERROUS SULFATE

REACTIONS (1)
  - Bradycardia [None]
